FAERS Safety Report 5211836-1 (Version None)
Quarter: 2007Q1

REPORT INFORMATION
  Report Type: 
  Country: None (occurrence: None)
  Receive Date: 20070118
  Receipt Date: 20070104
  Transmission Date: 20070707
  Serious: Yes (Other)
  Sender: FDA-Public Use
  Company Number: IL-ELI_LILLY_AND_COMPANY-IL200612003311

PATIENT
  Age: 78 Year
  Sex: Female
  Weight: 50 kg

DRUGS (15)
  1. FORTEO [Suspect]
     Indication: OSTEOPOROSIS
     Dosage: 20 UG, DAILY (1/D)
     Dates: start: 20051001
  2. COLDEX [Concomitant]
     Dosage: UNK UNK, AS NEEDED
     Route: 048
  3. MUCOLIT [Concomitant]
     Dosage: UNK UNK, AS NEEDED
     Route: 048
  4. VITAMIN CAP [Concomitant]
     Dosage: UNK UNK, AS NEEDED
     Route: 048
  5. SIMVASTATIN [Concomitant]
     Dosage: 10 MG, DAILY (1/D)
     Route: 048
  6. CIPRALEX                                /DEN/ [Concomitant]
     Dosage: 10 MG, DAILY (1/D)
     Route: 048
  7. ASCORBIC ACID [Concomitant]
     Dosage: 500 MG, DAILY (1/D)
     Route: 048
  8. CALCIUM WITH VITAMIN D [Concomitant]
     Dosage: UNK UNK, 2/D
     Route: 048
  9. LORIVAN [Concomitant]
     Dosage: UNK UNK, DAILY (1/D)
     Route: 048
  10. ACAMOL [Concomitant]
     Dosage: 500 MG, 3/D
     Route: 048
  11. NORMITEN [Concomitant]
     Dosage: 75 MG, DAILY (1/D)
     Route: 048
  12. NORVASC [Concomitant]
     Dosage: 5 MG, UNK
     Route: 048
  13. TRAMADEX                                /ISR/ [Concomitant]
     Dosage: UNK UNK, AS NEEDED
  14. MICROPIRIN [Concomitant]
     Dosage: 75 MG, UNK
     Route: 048
  15. OPTALGIN [Concomitant]
     Dosage: 500 MG, AS NEEDED
     Route: 048

REACTIONS (1)
  - BREAST CANCER METASTATIC [None]
